FAERS Safety Report 24773184 (Version 2)
Quarter: 2025Q1

REPORT INFORMATION
  Report Type: Report from Study
  Country: NL (occurrence: NL)
  Receive Date: 20241225
  Receipt Date: 20250104
  Transmission Date: 20250408
  Serious: Yes (Congenital Anomaly, Other)
  Sender: AUROBINDO
  Company Number: NL-UCBSA-2024002899

PATIENT
  Weight: 3.77 kg

DRUGS (10)
  1. LEVOCETIRIZINE [Suspect]
     Active Substance: LEVOCETIRIZINE
     Indication: Drug therapy
     Route: 065
  2. MOMETASONE FUROATE [Suspect]
     Active Substance: MOMETASONE FUROATE
     Indication: Drug therapy
     Route: 065
  3. ACETAMINOPHEN [Suspect]
     Active Substance: ACETAMINOPHEN
     Indication: Product used for unknown indication
     Route: 064
  4. ACETAMINOPHEN [Suspect]
     Active Substance: ACETAMINOPHEN
     Indication: Product used for unknown indication
     Route: 064
  5. BUDESONIDE\FORMOTEROL [Suspect]
     Active Substance: BUDESONIDE\FORMOTEROL
     Indication: Drug therapy
     Route: 065
  6. COVID-19 VACCINE NOS [Suspect]
     Active Substance: COVID-19 VACCINE
     Indication: Product used for unknown indication
     Route: 064
  7. DUPILUMAB [Suspect]
     Active Substance: DUPILUMAB
     Indication: Eczema
     Route: 065
  8. DUPILUMAB [Suspect]
     Active Substance: DUPILUMAB
     Indication: Drug therapy
  9. PERTUSSIS VACCINE [Suspect]
     Active Substance: PERTUSSIS VACCINE
     Indication: Product used for unknown indication
     Route: 064
  10. SALICYLIC ACID [Suspect]
     Active Substance: SALICYLIC ACID
     Indication: Product used for unknown indication
     Route: 064

REACTIONS (4)
  - Ventricular septal defect [Unknown]
  - Paternal exposure during pregnancy [Unknown]
  - Foetal exposure during pregnancy [Unknown]
  - Paternal exposure before pregnancy [Unknown]
